FAERS Safety Report 11371290 (Version 2)
Quarter: 2015Q3

REPORT INFORMATION
  Report Type: Report from Study
  Country: BR (occurrence: BR)
  Receive Date: 20150812
  Receipt Date: 20150910
  Transmission Date: 20151125
  Serious: Yes (Hospitalization)
  Sender: FDA-Public Use
  Company Number: PHHY2015BR096811

PATIENT
  Sex: Female
  Weight: 80 kg

DRUGS (1)
  1. GILENYA [Suspect]
     Active Substance: FINGOLIMOD HYDROCHLORIDE
     Indication: MULTIPLE SCLEROSIS
     Dosage: 1 DF, QD
     Route: 065

REACTIONS (6)
  - Hypoaesthesia [Unknown]
  - Central nervous system lesion [Unknown]
  - Discomfort [Unknown]
  - Brain oedema [Unknown]
  - Multiple sclerosis relapse [Unknown]
  - Treatment failure [Unknown]
